FAERS Safety Report 6971880 (Version 4)
Quarter: 2014Q2

REPORT INFORMATION
  Report Type: Spontaneous
  Country: FR (occurrence: FR)
  Receive Date: 20090417
  Receipt Date: 20140513
  Transmission Date: 20141212
  Serious: Yes (Hospitalization, Other)
  Sender: FDA-Public Use
  Company Number: FR-PFIZER INC-2009194321

PATIENT
  Age: 57 Year
  Sex: Female
  Weight: 128 kg

DRUGS (11)
  1. XANAX [Suspect]
     Indication: UNEVALUABLE EVENT
     Dosage: UNK
     Route: 048
     Dates: start: 200501
  2. TRIATEC [Suspect]
     Indication: CARDIAC FAILURE
     Dosage: UNK
     Route: 048
     Dates: start: 200501
  3. TRIATEC [Suspect]
     Indication: CARDIAC FAILURE
  4. PAROXETINE [Suspect]
     Indication: DEPRESSION
     Dosage: UNK
     Route: 048
     Dates: start: 2005, end: 2007
  5. MEDIATOR [Suspect]
     Indication: DIABETES MELLITUS
     Dosage: 3 DF, 1X/DAY
     Route: 048
     Dates: start: 20030820, end: 20060807
  6. LASILIX [Suspect]
     Dosage: UNK
     Route: 048
     Dates: start: 200501
  7. FORADIL [Suspect]
     Indication: UNEVALUABLE EVENT
     Dosage: UNK
     Route: 048
     Dates: start: 200501
  8. FORADIL [Suspect]
     Dosage: UNK
     Route: 055
     Dates: start: 200501
  9. DI-ANTALVIC [Suspect]
     Dosage: UNK
     Route: 048
     Dates: start: 200501
  10. DIFFU K [Suspect]
     Indication: UNEVALUABLE EVENT
     Dosage: UNK
     Route: 048
     Dates: start: 200501
  11. LEVOTHYROX [Suspect]
     Indication: UNEVALUABLE EVENT
     Dosage: UNK
     Route: 048
     Dates: start: 200501

REACTIONS (5)
  - Ejection fraction decreased [Not Recovered/Not Resolved]
  - Mitral valve incompetence [Not Recovered/Not Resolved]
  - Pulmonary arterial hypertension [Not Recovered/Not Resolved]
  - Tricuspid valve incompetence [Unknown]
  - Ventricular hypokinesia [Unknown]
